FAERS Safety Report 21550314 (Version 1)
Quarter: 2022Q4

REPORT INFORMATION
  Report Type: Spontaneous
  Country: US (occurrence: None)
  Receive Date: 20221103
  Receipt Date: 20221103
  Transmission Date: 20230112
  Serious: No
  Sender: FDA-Public Use
  Company Number: None

PATIENT
  Age: 40 Year
  Sex: Female
  Weight: 56.25 kg

DRUGS (1)
  1. BIVIGAM [Suspect]
     Active Substance: HUMAN IMMUNOGLOBULIN G
     Indication: Immunodeficiency
     Dosage: OTHER FREQUENCY : Q4 WEEKS;?
     Route: 041
     Dates: start: 20210816, end: 20221020

REACTIONS (3)
  - Fatigue [None]
  - Neuropathy peripheral [None]
  - Condition aggravated [None]

NARRATIVE: CASE EVENT DATE: 20221021
